FAERS Safety Report 8998495 (Version 2)
Quarter: 2013Q1

REPORT INFORMATION
  Report Type: Report from Study
  Country: US (occurrence: US)
  Receive Date: 20130103
  Receipt Date: 20130225
  Transmission Date: 20140127
  Serious: Yes (Hospitalization, Other)
  Sender: FDA-Public Use
  Company Number: US-ACTELION-A-US2012-76868

PATIENT
  Age: 80 Year
  Sex: Male

DRUGS (1)
  1. TRACLEER [Suspect]
     Indication: PULMONARY ARTERIAL HYPERTENSION
     Dosage: UNK
     Route: 048
     Dates: start: 20121013

REACTIONS (6)
  - Dialysis [Unknown]
  - Dialysis related complication [Unknown]
  - Dyspnoea [Unknown]
  - Blood pressure increased [Unknown]
  - Anaemia [Unknown]
  - Dyspnoea exertional [Unknown]
